FAERS Safety Report 4878160-8 (Version None)
Quarter: 2005Q4

REPORT INFORMATION
  Report Type: 
  Country: None (occurrence: None)
  Receive Date: 20051209
  Receipt Date: 20050714
  Transmission Date: 20060501
  Serious: Yes (Other)
  Sender: FDA-Public Use
  Company Number: USA-2005-0020782

PATIENT
  Age: 21 Year
  Sex: Male

DRUGS (3)
  1. OXYCONTIN [Suspect]
     Dosage: MG
  2. ZOLOFT [Concomitant]
  3. CLARITIN [Concomitant]

REACTIONS (2)
  - DRUG ABUSER [None]
  - DRUG DEPENDENCE [None]
